FAERS Safety Report 9937409 (Version 1)
Quarter: 2014Q1

REPORT INFORMATION
  Report Type: Report from Study
  Country: FR (occurrence: FR)
  Receive Date: 20140303
  Receipt Date: 20140303
  Transmission Date: 20141002
  Serious: Yes (Hospitalization)
  Sender: FDA-Public Use
  Company Number: FR-ROCHE-1353507

PATIENT
  Sex: Female

DRUGS (1)
  1. BEVACIZUMAB [Suspect]
     Indication: BREAST CANCER
     Dosage: LAST DOSE OF PRIOR TO SAE:15 MG/KG ON 24/JAN/2014.
     Route: 065
     Dates: start: 20120615, end: 20140124

REACTIONS (1)
  - Acute coronary syndrome [Recovered/Resolved]
